FAERS Safety Report 10596664 (Version 2)
Quarter: 2014Q4

REPORT INFORMATION
  Report Type: Spontaneous
  Country: US (occurrence: US)
  Receive Date: 20141120
  Receipt Date: 20141120
  Transmission Date: 20150529
  Serious: Yes (Other)
  Sender: FDA-Public Use
  Company Number: US-PERRIGO-14US009667

PATIENT
  Age: 27 Year
  Sex: Female

DRUGS (2)
  1. ACETAMINOPHEN-ASPIRIN-CAFFEINE 6X0 [Suspect]
     Active Substance: ACETAMINOPHEN\ASPIRIN\CAFFEINE
     Indication: HEADACHE
     Dosage: 1 TABLET, SINGLE AT 2023
     Route: 048
     Dates: start: 20140921, end: 20140921
  2. ACETAMINOPHEN-ASPIRIN-CAFFEINE 6X0 [Suspect]
     Active Substance: ACETAMINOPHEN\ASPIRIN\CAFFEINE
     Dosage: 2 TABLETS, SINGLE AT 2230
     Route: 048
     Dates: start: 20140921, end: 20140921

REACTIONS (11)
  - Hallucination [Recovered/Resolved]
  - Euphoric mood [Recovered/Resolved]
  - Somnolence [Unknown]
  - Drug ineffective [Unknown]
  - Inappropriate schedule of drug administration [Recovered/Resolved]
  - Dizziness [Unknown]
  - Feeling abnormal [Unknown]
  - Limb discomfort [Recovered/Resolved]
  - Underdose [Recovered/Resolved]
  - Nausea [Recovered/Resolved]
  - Abdominal discomfort [Recovered/Resolved]

NARRATIVE: CASE EVENT DATE: 20140921
